FAERS Safety Report 9908691 (Version 1)
Quarter: 2014Q1

REPORT INFORMATION
  Report Type: Spontaneous
  Country: US (occurrence: None)
  Receive Date: 20140212
  Receipt Date: 20140212
  Transmission Date: 20141002
  Serious: Yes (Hospitalization)
  Sender: FDA-Public Use
  Company Number: None

PATIENT
  Age: 30 Year
  Sex: Female
  Weight: 65.86 kg

DRUGS (1)
  1. CISPLATIN [Suspect]

REACTIONS (5)
  - Dehydration [None]
  - Fatigue [None]
  - Nausea [None]
  - Vomiting [None]
  - Anaemia [None]
